FAERS Safety Report 7251100-2 (Version None)
Quarter: 2011Q1

REPORT INFORMATION
  Report Type: 
  Country: None (occurrence: None)
  Receive Date: 20110119
  Receipt Date: 20110107
  Transmission Date: 20110831
  Serious: Yes (Other)
  Sender: FDA-Public Use
  Company Number: 025020

PATIENT
  Sex: Male

DRUGS (6)
  1. MALOCIDE /00112501/ (MALOCIDE) [Suspect]
     Indication: CEREBRAL TOXOPLASMOSIS
     Dosage: 50 MG QD ORAL
     Route: 048
     Dates: start: 20101126, end: 20101218
  2. TRIFLUCAN (TRIFLUCAN) [Suspect]
     Dosage: 100 MG QD ORAL
     Route: 048
     Dates: start: 20101126, end: 20101209
  3. ROVALCYTE /01542201/ (ROVALCYTE) (NOT SPECIFIED) [Suspect]
     Dosage: 450 MG ORAL
     Route: 048
     Dates: start: 20101130, end: 20101209
  4. NEXIUM [Suspect]
     Dosage: 20 MG QD ORAL
     Route: 048
     Dates: start: 20101126, end: 20101209
  5. KEPPRA [Suspect]
     Indication: CONVULSION
     Dosage: ORAL
     Route: 048
     Dates: start: 20101126, end: 20101215
  6. ADIAZINE (ADIAZINE) [Suspect]
     Indication: CEREBRAL TOXOPLASMOSIS
     Dosage: 2 G TID ORAL
     Route: 048
     Dates: start: 20101126, end: 20101211

REACTIONS (1)
  - THROMBOCYTOPENIA [None]
